FAERS Safety Report 6469197-6 (Version None)
Quarter: 2009Q4

REPORT INFORMATION
  Report Type: 
  Country: None (occurrence: None)
  Receive Date: 20091203
  Receipt Date: 20080714
  Transmission Date: 20100525
  Serious: Yes (Hospitalization)
  Sender: FDA-Public Use
  Company Number: US-ELI_LILLY_AND_COMPANY-US200709003595

PATIENT
  Sex: Female

DRUGS (7)
  1. EVISTA [Suspect]
     Dosage: 60 MG, DAILY (1/D)
  2. FORTEO [Interacting]
     Dosage: 750 UNK, UNK
     Dates: start: 20080901, end: 20080525
  3. TRICOR [Concomitant]
     Dosage: UNK, DAILY (1/D)
  4. ZOCOR [Interacting]
     Dosage: UNK, DAILY (1/D)
  5. CALCIUM [Concomitant]
     Dosage: 1200 MG, DAILY (1/D)
  6. VITAMIN D [Concomitant]
     Dosage: 900 IU, UNK
  7. PREVACID [Concomitant]
     Dosage: UNK, DAILY (1/D)

REACTIONS (8)
  - BLOOD CHOLESTEROL INCREASED [None]
  - BLOOD TRIGLYCERIDES INCREASED [None]
  - DRUG INTERACTION [None]
  - DYSPNOEA [None]
  - HIP FRACTURE [None]
  - POST PROCEDURAL COMPLICATION [None]
  - TIBIA FRACTURE [None]
  - UPPER LIMB FRACTURE [None]
